FAERS Safety Report 10802066 (Version 1)
Quarter: 2015Q1

REPORT INFORMATION
  Report Type: Spontaneous
  Country: US (occurrence: US)
  Receive Date: 20150217
  Receipt Date: 20150217
  Transmission Date: 20150721
  Serious: No
  Sender: FDA-Public Use
  Company Number: US-BAYER-2015-018374

PATIENT
  Sex: Female

DRUGS (1)
  1. CLIMARA [Suspect]
     Active Substance: ESTRADIOL
     Dosage: 0.025 MG/D, Q1WK
     Route: 062
     Dates: start: 20150131

REACTIONS (3)
  - Drug ineffective [None]
  - Hot flush [None]
  - Headache [None]

NARRATIVE: CASE EVENT DATE: 2015
